FAERS Safety Report 4607605-3 (Version None)
Quarter: 2005Q1

REPORT INFORMATION
  Report Type: 
  Country: None (occurrence: None)
  Receive Date: 20050314
  Receipt Date: 20010711
  Transmission Date: 20050727
  Serious: Yes (Hospitalization)
  Sender: FDA-Public Use
  Company Number: PHBS2001JP07030

PATIENT
  Age: 53 Year
  Sex: Male

DRUGS (2)
  1. SANDIMMUNE [Suspect]
     Indication: BEHCET'S SYNDROME
     Dates: start: 19991001, end: 20000922
  2. NEORAL [Suspect]
     Indication: BEHCET'S SYNDROME
     Dosage: 200 MG/DAY
     Route: 048
     Dates: start: 20000922

REACTIONS (19)
  - ANAEMIA [None]
  - BEHCET'S SYNDROME [None]
  - BULBAR PALSY [None]
  - COMMUNICATION DISORDER [None]
  - CSF MONOCYTE COUNT INCREASED [None]
  - CSF NEUTROPHIL COUNT POSITIVE [None]
  - CSF TEST ABNORMAL [None]
  - DRUG LEVEL FLUCTUATING [None]
  - DYSLALIA [None]
  - DYSPHAGIA [None]
  - EXTENSOR PLANTAR RESPONSE [None]
  - HEADACHE [None]
  - HYPOREFLEXIA [None]
  - LEUKOCYTOSIS [None]
  - NAUSEA [None]
  - PALATAL DISORDER [None]
  - PLEOCYTOSIS [None]
  - RED BLOOD CELL SEDIMENTATION RATE INCREASED [None]
  - REFLEXES ABNORMAL [None]
